FAERS Safety Report 22606116 (Version 1)
Quarter: 2023Q2

REPORT INFORMATION
  Report Type: Spontaneous
  Country: GB (occurrence: GB)
  Receive Date: 20230615
  Receipt Date: 20230615
  Transmission Date: 20230721
  Serious: Yes (Other)
  Sender: FDA-Public Use
  Company Number: GB-FreseniusKabi-FK202308841

PATIENT
  Age: 42 Year
  Sex: Female

DRUGS (4)
  1. NOREPINEPHRINE [Suspect]
     Active Substance: NOREPINEPHRINE
     Indication: Septic shock
  2. MILRINONE [Suspect]
     Active Substance: MILRINONE
     Indication: Septic shock
  3. EPINEPHRINE [Suspect]
     Active Substance: EPINEPHRINE
     Indication: Septic shock
  4. VASOPRESSIN [Concomitant]
     Active Substance: VASOPRESSIN
     Indication: Septic shock

REACTIONS (1)
  - Extremity necrosis [Unknown]
